FAERS Safety Report 4791745-2 (Version None)
Quarter: 2005Q4

REPORT INFORMATION
  Report Type: 
  Country: None (occurrence: None)
  Receive Date: 20051007
  Receipt Date: 20050913
  Transmission Date: 20060501
  Serious: Yes (Other)
  Sender: FDA-Public Use
  Company Number: PHFR2005GB03067

PATIENT
  Age: 43 Year
  Sex: Male
  Weight: 64 kg

DRUGS (4)
  1. ZOMETA [Suspect]
     Indication: METASTASES TO BONE
     Dosage: 4 MG, QMO
     Route: 042
     Dates: start: 20040701
  2. INTERFERON [Concomitant]
     Indication: RENAL CELL CARCINOMA STAGE UNSPECIFIED
     Dosage: 10 MILLION UNITS
     Route: 058
     Dates: start: 20040701, end: 20050901
  3. TRAMADOL [Concomitant]
     Dosage: 50 MG, TID
     Route: 048
  4. ACETAMINOPHEN [Concomitant]
     Dosage: 1 G, QID
     Route: 048

REACTIONS (2)
  - DYSPHAGIA [None]
  - PARATHYROID TUMOUR BENIGN [None]
